FAERS Safety Report 15997979 (Version 1)
Quarter: 2019Q1

REPORT INFORMATION
  Report Type: Report from Study
  Country: US (occurrence: US)
  Receive Date: 20190222
  Receipt Date: 20190222
  Transmission Date: 20190418
  Serious: Yes (Death, Hospitalization)
  Sender: FDA-Public Use
  Company Number: US-ACTELION-A-NJ2019-186608

PATIENT
  Age: 49 Year
  Sex: Female

DRUGS (1)
  1. OPSUMIT [Suspect]
     Active Substance: MACITENTAN
     Indication: PULMONARY ARTERIAL HYPERTENSION
     Dosage: 10 MG, QD
     Route: 048
     Dates: end: 20181229

REACTIONS (13)
  - Septic shock [Unknown]
  - Dyspnoea [Unknown]
  - Renal failure [Unknown]
  - Pain [Unknown]
  - Peritonitis [Unknown]
  - Oxygen saturation decreased [Unknown]
  - Organ failure [Fatal]
  - Condition aggravated [Unknown]
  - Sepsis [Fatal]
  - Hepatic failure [Unknown]
  - Tissue injury [Unknown]
  - Generalised oedema [Unknown]
  - General physical health deterioration [Unknown]
